FAERS Safety Report 8275241-6 (Version None)
Quarter: 2012Q2

REPORT INFORMATION
  Report Type: 
  Country: None (occurrence: None)
  Receive Date: 20120411
  Receipt Date: 20120402
  Transmission Date: 20120825
  Serious: Yes (Other)
  Sender: FDA-Public Use
  Company Number: FR-ROCHE-1056093

PATIENT
  Sex: Female

DRUGS (3)
  1. XENICAL [Suspect]
     Indication: OVERWEIGHT
     Route: 048
     Dates: start: 20120307, end: 20120310
  2. MODURETIC 5-50 [Concomitant]
  3. ABUFENE [Concomitant]

REACTIONS (2)
  - HAEMATOCHEZIA [None]
  - DIARRHOEA [None]
